FAERS Safety Report 5165667-1 (Version None)
Quarter: 2006Q4

REPORT INFORMATION
  Report Type: 
  Country: None (occurrence: None)
  Receive Date: 20061128
  Receipt Date: 20061117
  Transmission Date: 20070319
  Serious: Yes (Hospitalization, Other)
  Sender: FDA-Public Use
  Company Number: HQWYE994120NOV06

PATIENT
  Age: 77 Year
  Sex: Female

DRUGS (3)
  1. CEFIXIME CHEWABLE [Suspect]
     Dosage: ORAL
     Route: 048
     Dates: start: 20060918, end: 20060922
  2. FLAGYL [Suspect]
     Dosage: 3 TABLET 1X PER 1 DAY ORAL
     Route: 048
     Dates: start: 20060918, end: 20060922
  3. COTAREG (HYDROCHLOROTHIAZIDE/VALSARTAN) [Concomitant]

REACTIONS (4)
  - ALANINE AMINOTRANSFERASE INCREASED [None]
  - ASPARTATE AMINOTRANSFERASE INCREASED [None]
  - GAMMA-GLUTAMYLTRANSFERASE INCREASED [None]
  - PANCREATITIS ACUTE [None]
